FAERS Safety Report 8564470-X (Version None)
Quarter: 2012Q3

REPORT INFORMATION
  Report Type: 
  Country: None (occurrence: None)
  Receive Date: 20120803
  Receipt Date: 20120801
  Transmission Date: 20120928
  Serious: Yes (Other)
  Sender: FDA-Public Use
  Company Number: BR-BAYER-2012-077622

PATIENT
  Age: 47 Year
  Sex: Female
  Weight: 54.422 kg

DRUGS (5)
  1. NEOSALDINA [Concomitant]
     Indication: HEADACHE
     Dosage: 1 DF, PRN
     Route: 048
  2. ESTRADIOL VALERATE/DIENOGEST [Suspect]
     Indication: MENOPAUSAL SYMPTOMS
  3. HOMEOPATIC PREPARATION [Concomitant]
     Indication: DEPRESSION
     Dosage: 5 GTT, QD
     Route: 048
     Dates: start: 20040101
  4. ESTRADIOL VALERATE/DIENOGEST [Suspect]
     Indication: CONTRACEPTION
     Dosage: 1 DF, QD
     Route: 048
     Dates: start: 20110701
  5. DECONGEX PLUS [Concomitant]
     Indication: RHINITIS
     Dosage: 1 DF, PRN
     Route: 048

REACTIONS (2)
  - TUBERCULOSIS [None]
  - OSTEOPOROSIS [None]
